FAERS Safety Report 7801336-4 (Version None)
Quarter: 2011Q4

REPORT INFORMATION
  Report Type: 
  Country: None (occurrence: None)
  Receive Date: 20111007
  Receipt Date: 20111005
  Transmission Date: 20120403
  Serious: No
  Sender: FDA-Public Use
  Company Number: US-PFIZER INC-2011237922

PATIENT
  Sex: Male

DRUGS (1)
  1. LORATADINE [Suspect]
     Dosage: UNK

REACTIONS (4)
  - ASTHENIA [None]
  - FATIGUE [None]
  - SENSATION OF HEAVINESS [None]
  - MUSCULAR WEAKNESS [None]
